FAERS Safety Report 10239211 (Version 1)
Quarter: 2014Q2

REPORT INFORMATION
  Report Type: Spontaneous
  Country: PL (occurrence: PL)
  Receive Date: 20140616
  Receipt Date: 20140616
  Transmission Date: 20141212
  Serious: Yes (Other)
  Sender: FDA-Public Use
  Company Number: PL-GLAXOSMITHKLINE-B1001138A

PATIENT
  Age: 7 Month
  Sex: 0

DRUGS (2)
  1. INFANRIX [Suspect]
     Indication: PROPHYLAXIS
     Dosage: .5ML SINGLE DOSE
     Route: 030
     Dates: start: 20140120, end: 20140120
  2. ZINNAT [Suspect]
     Route: 065
     Dates: start: 20140126

REACTIONS (3)
  - Pyrexia [Recovered/Resolved]
  - Injection site reaction [Recovered/Resolved]
  - Vomiting [Recovered/Resolved]
